FAERS Safety Report 10234778 (Version 1)
Quarter: 2014Q2

REPORT INFORMATION
  Report Type: Spontaneous
  Country: US (occurrence: None)
  Receive Date: 20140509
  Receipt Date: 20140509
  Transmission Date: 20141212
  Serious: Yes (Other)
  Sender: FDA-Public Use
  Company Number: VISP-PR-1402S-0055

PATIENT
  Age: 74 Year
  Sex: Female

DRUGS (2)
  1. VISIPAQUE (IODIXANOL) [Suspect]
     Indication: AORTIC ANEURYSM
     Route: 042
     Dates: start: 20140217, end: 20140217
  2. VISIPAQUE (IODIXANOL) [Suspect]
     Indication: DIAGNOSTIC PROCEDURE
     Route: 042
     Dates: start: 20140217, end: 20140217

REACTIONS (1)
  - Urticaria [None]
